FAERS Safety Report 17168604 (Version 7)
Quarter: 2020Q2

REPORT INFORMATION
  Report Type: Report from Study
  Country: None (occurrence: US)
  Receive Date: 20191218
  Receipt Date: 20200624
  Transmission Date: 20200713
  Serious: Yes (Hospitalization, Other)
  Sender: FDA-Public Use
  Company Number: US-ABBVIE-19K-163-3184262-00

PATIENT
  Sex: Female
  Weight: 98.97 kg

DRUGS (14)
  1. OMEPRAZOLE. [Concomitant]
     Active Substance: OMEPRAZOLE
     Indication: GASTROOESOPHAGEAL REFLUX DISEASE
  2. RANITIDINE. [Concomitant]
     Active Substance: RANITIDINE
     Indication: GASTROOESOPHAGEAL REFLUX DISEASE
  3. LEVOTHYROXINE. [Concomitant]
     Active Substance: LEVOTHYROXINE
     Indication: HYPOTHYROIDISM
  4. HUMIRA [Suspect]
     Active Substance: ADALIMUMAB
     Indication: RHEUMATOID ARTHRITIS
     Route: 058
     Dates: start: 2015, end: 201912
  5. NOVOLOG [Concomitant]
     Active Substance: INSULIN ASPART
     Indication: TYPE 2 DIABETES MELLITUS
  6. SYMBICORT [Concomitant]
     Active Substance: BUDESONIDE\FORMOTEROL FUMARATE DIHYDRATE
     Indication: ASTHMA
  7. GABAPENTIN. [Concomitant]
     Active Substance: GABAPENTIN
     Indication: NEUROPATHY PERIPHERAL
  8. HUMIRA [Suspect]
     Active Substance: ADALIMUMAB
     Route: 058
     Dates: start: 201912
  9. SINGULAIR [Concomitant]
     Active Substance: MONTELUKAST SODIUM
     Indication: SEASONAL ALLERGY
  10. LISINOPRIL. [Concomitant]
     Active Substance: LISINOPRIL
     Indication: PROPHYLAXIS
  11. HUMIRA [Suspect]
     Active Substance: ADALIMUMAB
     Route: 058
  12. HYDROXYCHLOROQUINE [Concomitant]
     Active Substance: HYDROXYCHLOROQUINE
     Indication: SARCOIDOSIS
  13. LANTUS [Concomitant]
     Active Substance: INSULIN GLARGINE
     Indication: TYPE 2 DIABETES MELLITUS
  14. PROAIR HFA [Concomitant]
     Active Substance: ALBUTEROL SULFATE
     Indication: ASTHMA

REACTIONS (37)
  - Liver sarcoidosis [Unknown]
  - Alanine aminotransferase increased [Recovering/Resolving]
  - Neuropathy peripheral [Unknown]
  - Diarrhoea [Recovered/Resolved]
  - Eye contusion [Unknown]
  - Gait disturbance [Recovering/Resolving]
  - Nausea [Recovered/Resolved]
  - Pain [Unknown]
  - Dehydration [Recovered/Resolved]
  - Blood insulin abnormal [Unknown]
  - Bursa injury [Recovering/Resolving]
  - Abdominal pain [Recovered/Resolved]
  - Sarcoidosis [Recovered/Resolved]
  - Nasopharyngitis [Unknown]
  - Faeces discoloured [Recovered/Resolved]
  - Influenza like illness [Unknown]
  - Musculoskeletal stiffness [Unknown]
  - Nasal injury [Unknown]
  - Joint injury [Unknown]
  - Joint range of motion decreased [Recovering/Resolving]
  - Fall [Recovered/Resolved]
  - White blood cell count decreased [Unknown]
  - Aspartate aminotransferase increased [Recovering/Resolving]
  - Skin cancer [Unknown]
  - Diabetes mellitus [Unknown]
  - Dehydration [Unknown]
  - Arthralgia [Recovering/Resolving]
  - Pyrexia [Recovered/Resolved]
  - Fall [Unknown]
  - Blood glucose abnormal [Recovered/Resolved]
  - Sarcoidosis [Recovered/Resolved]
  - Dizziness [Unknown]
  - Platelet count decreased [Unknown]
  - Gait disturbance [Unknown]
  - Knee operation [Unknown]
  - Arthralgia [Recovering/Resolving]
  - Arthropathy [Unknown]

NARRATIVE: CASE EVENT DATE: 2019
